FAERS Safety Report 8311160-4 (Version None)
Quarter: 2012Q2

REPORT INFORMATION
  Report Type: 
  Country: None (occurrence: None)
  Receive Date: 20120423
  Receipt Date: 20120416
  Transmission Date: 20120825
  Serious: Yes (Hospitalization)
  Sender: FDA-Public Use
  Company Number: 2012SP018282

PATIENT
  Age: 55 Year
  Sex: Female
  Weight: 65 kg

DRUGS (6)
  1. RABEPRAZOLE SODIUM [Concomitant]
  2. REBETOL [Suspect]
     Indication: HEPATITIS C
     Dosage: 400 MG;QD;PO  : 200 MG;QD;PO
     Route: 048
     Dates: start: 20120207, end: 20120305
  3. REBETOL [Suspect]
     Indication: HEPATITIS C
     Dosage: 400 MG;QD;PO  : 200 MG;QD;PO
     Route: 048
     Dates: start: 20120306
  4. TELAVIC (ANTIVIRALS NOS) [Suspect]
     Indication: HEPATITIS C
     Dosage: 1500 MG;QD;PO
     Route: 048
     Dates: start: 20120207
  5. PEG-INTRON [Suspect]
     Indication: HEPATITIS C
     Dosage: 1.5 MCG/KG;QW;SC
     Route: 058
     Dates: start: 20120207
  6. CANDESARTAN CILEXETIL [Concomitant]

REACTIONS (4)
  - MALAISE [None]
  - HEADACHE [None]
  - URINARY TRACT INFECTION [None]
  - HAEMOGLOBIN DECREASED [None]
